FAERS Safety Report 9114698 (Version 2)
Quarter: 2013Q2

REPORT INFORMATION
  Report Type: Spontaneous
  Country: JP (occurrence: None)
  Receive Date: 20130129
  Receipt Date: 20130422
  Transmission Date: 20140414
  Serious: Yes (Other)
  Sender: FDA-Public Use
  Company Number: JP-010758

PATIENT
  Age: 87 Year
  Sex: Male
  Weight: 52 kg

DRUGS (14)
  1. GONAX [Suspect]
     Indication: PROSTATE CANCER
     Dosage: ONE DOSAGE PER MONTH.
     Route: 058
     Dates: start: 20121212, end: 20121212
  2. CELESTAMINE [Suspect]
     Indication: INJECTION SITE REACTION
     Route: 048
     Dates: start: 20121212, end: 20121213
  3. ZYLORIC [Concomitant]
  4. FLIVAS [Concomitant]
  5. BESACOLIN [Concomitant]
  6. DORNER [Concomitant]
  7. NEXIUM [Concomitant]
  8. MUCOSTA [Concomitant]
  9. PURSENNID /00571902/ [Concomitant]
  10. EPADEL-S [Concomitant]
  11. HACHIIMIJIO-GAN [Concomitant]
  12. BLOPRESS [Concomitant]
  13. DECADRON /00016001/ [Concomitant]
  14. DEXART [Suspect]

REACTIONS (9)
  - Anaemia [None]
  - Blood bilirubin increased [None]
  - Gamma-glutamyltransferase increased [None]
  - Aspartate aminotransferase increased [None]
  - Alanine aminotransferase increased [None]
  - Blood lactate dehydrogenase increased [None]
  - Blood alkaline phosphatase increased [None]
  - Gait disturbance [None]
  - Hepatic function abnormal [None]
